FAERS Safety Report 9003637 (Version 1)
Quarter: 2013Q1

REPORT INFORMATION
  Report Type: Other
  Country: GB (occurrence: GB)
  Receive Date: 20130108
  Receipt Date: 20130108
  Transmission Date: 20140127
  Serious: Yes (Other)
  Sender: FDA-Public Use
  Company Number: GB-WATSON-2012-23313

PATIENT
  Sex: Female

DRUGS (2)
  1. OMEPRAZOLE (UNKNOWN) [Suspect]
     Indication: GASTRIC CANCER
     Dosage: 2 DF, UNKNOWN
     Route: 065
  2. CO-CODAMOL [Concomitant]
     Indication: PRODUCT USED FOR UNKNOWN INDICATION
     Dosage: UNK
     Route: 065

REACTIONS (3)
  - Decreased activity [Recovered/Resolved]
  - Dizziness [Recovered/Resolved]
  - Asthenia [Recovered/Resolved]
